FAERS Safety Report 5730023-1 (Version None)
Quarter: 2008Q2

REPORT INFORMATION
  Report Type: 
  Country: None (occurrence: None)
  Receive Date: 20080507
  Receipt Date: 20080430
  Transmission Date: 20081010
  Serious: Yes (Hospitalization)
  Sender: FDA-Public Use
  Company Number: US-JNJFOC-20080500296

PATIENT
  Sex: Male
  Weight: 81.65 kg

DRUGS (9)
  1. FENTANYL TRANSDERMAL SYSTEM [Suspect]
     Route: 062
  2. FENTANYL TRANSDERMAL SYSTEM [Suspect]
     Indication: PAIN
     Route: 062
  3. LISINOPRIL [Concomitant]
     Indication: BLOOD PRESSURE
     Route: 048
  4. VERAPAMIL [Concomitant]
     Indication: BLOOD PRESSURE
     Route: 048
  5. COLCHINCINE [Concomitant]
     Indication: GOUT
     Route: 048
  6. ASPIRIN [Concomitant]
     Indication: CARDIAC DISORDER
     Route: 048
  7. ZANTAC [Concomitant]
     Indication: GASTROOESOPHAGEAL REFLUX DISEASE
     Route: 048
  8. TERAZOSIN HCL [Concomitant]
     Indication: PROSTATIC DISORDER
     Route: 048
  9. ZETIA [Concomitant]
     Indication: BLOOD CHOLESTEROL INCREASED
     Route: 048

REACTIONS (4)
  - AMNESIA [None]
  - FALL [None]
  - SUICIDE ATTEMPT [None]
  - WRONG TECHNIQUE IN DRUG USAGE PROCESS [None]
